FAERS Safety Report 11527354 (Version 1)
Quarter: 2015Q3

REPORT INFORMATION
  Report Type: Other
  Country: US (occurrence: US)
  Receive Date: 20150920
  Receipt Date: 20150920
  Transmission Date: 20151125
  Serious: Yes (Life-Threatening)
  Sender: FDA-Public Use
  Company Number: US-ENDO PHARMACEUTICALS INC-2015-002891

PATIENT
  Age: 28 Year
  Sex: Male

DRUGS (2)
  1. AMITRIPTYLINE HCL 150MG [Suspect]
     Active Substance: AMITRIPTYLINE HYDROCHLORIDE
     Indication: PRODUCT USED FOR UNKNOWN INDICATION
     Route: 065
  2. LOPERAMIDE [Concomitant]
     Active Substance: LOPERAMIDE
     Indication: DIARRHOEA
     Dosage: 50 TABLETS (TOTAL DOSE 2GM)
     Route: 065

REACTIONS (1)
  - Torsade de pointes [Recovered/Resolved]
